FAERS Safety Report 17731780 (Version 1)
Quarter: 2020Q2

REPORT INFORMATION
  Report Type: Spontaneous
  Country: GR (occurrence: GR)
  Receive Date: 20200501
  Receipt Date: 20200501
  Transmission Date: 20200714
  Serious: Yes (Death, Hospitalization, Other)
  Sender: FDA-Public Use
  Company Number: GR-SUN PHARMACEUTICAL INDUSTRIES LTD-2020R1-245319

PATIENT
  Age: 15 Year
  Sex: Female

DRUGS (2)
  1. ETOPOSIDE. [Suspect]
     Active Substance: ETOPOSIDE
     Indication: PRODUCT USED FOR UNKNOWN INDICATION
     Dosage: UNK (60 MG/KG)
     Route: 065
  2. PREDNISONE. [Suspect]
     Active Substance: PREDNISONE
     Indication: PRODUCT USED FOR UNKNOWN INDICATION
     Dosage: UNK
     Route: 065

REACTIONS (9)
  - Epstein-Barr virus infection [Fatal]
  - Acute respiratory failure [Fatal]
  - Cytomegalovirus infection reactivation [Recovered/Resolved]
  - Central nervous system infection [Recovered/Resolved]
  - Neurological decompensation [Fatal]
  - Therapy partial responder [Unknown]
  - Limbic encephalitis [Recovered/Resolved]
  - Herpes virus infection [Recovered/Resolved]
  - Toxoplasmosis [Recovered/Resolved]
